FAERS Safety Report 16741524 (Version 3)
Quarter: 2020Q1

REPORT INFORMATION
  Report Type: Spontaneous
  Country: US (occurrence: US)
  Receive Date: 20190826
  Receipt Date: 20200317
  Transmission Date: 20200409
  Serious: Yes (Death, Other)
  Sender: FDA-Public Use
  Company Number: US-JNJFOC-20190830639

PATIENT
  Age: 86 Year
  Sex: Male

DRUGS (13)
  1. MIDODRINE [Concomitant]
     Active Substance: MIDODRINE
     Indication: HYPOTENSION
     Dosage: 1 IN AM/1 IN PM
     Dates: start: 20190118
  2. DENOSUMAB [Concomitant]
     Active Substance: DENOSUMAB
     Dates: start: 20190708
  3. ZYTIGA [Suspect]
     Active Substance: ABIRATERONE ACETATE
     Indication: PROSTATE CANCER
     Route: 048
  4. AMIODARONE HCL [Concomitant]
     Active Substance: AMIODARONE HYDROCHLORIDE
     Dosage: 1 IN AM
  5. PRAVASTINE [Concomitant]
     Active Substance: PRAVASTATIN SODIUM
     Indication: BLOOD CHOLESTEROL ABNORMAL
     Dosage: 1 IN PM
  6. LOPRESSOR [Concomitant]
     Active Substance: METOPROLOL TARTRATE
     Dosage: 1 IN AM AND IN PM
  7. VITAMIN D                          /00107901/ [Concomitant]
     Active Substance: ERGOCALCIFEROL
  8. FINASTERIDE. [Concomitant]
     Active Substance: FINASTERIDE
     Dosage: 1 IN PM
  9. JANTOVEN [Concomitant]
     Active Substance: WARFARIN SODIUM
     Dosage: 2 IN PM
  10. FOSAMAX [Concomitant]
     Active Substance: ALENDRONATE SODIUM
  11. DEXAMETHASONE. [Concomitant]
     Active Substance: DEXAMETHASONE
     Dosage: 1 IN AM/1 IN PM
     Dates: start: 20190805
  12. ZYLOPRIM [Concomitant]
     Active Substance: ALLOPURINOL
     Indication: GOUT
     Dosage: 1 IN AM
  13. LANOXIN [Concomitant]
     Active Substance: DIGOXIN
     Dosage: 1 IN AM

REACTIONS (2)
  - Death [Fatal]
  - Drug ineffective [Unknown]

NARRATIVE: CASE EVENT DATE: 20190923
